FAERS Safety Report 11990388 (Version 9)
Quarter: 2017Q4

REPORT INFORMATION
  Report Type: Report from Study
  Country: CA (occurrence: CA)
  Receive Date: 20160202
  Receipt Date: 20171113
  Transmission Date: 20180320
  Serious: Yes (Hospitalization, Other)
  Sender: FDA-Public Use
  Company Number: PHHY2015CA077085

PATIENT
  Age: 63 Year
  Sex: Male

DRUGS (3)
  1. ZOMETA [Suspect]
     Active Substance: ZOLEDRONIC ACID
     Indication: BLADDER CANCER
     Dosage: 4 MG,QMO (EVERY 4 WEEKS)
     Route: 042
     Dates: start: 20150622
  2. CALCIUM CARBONATE. [Concomitant]
     Active Substance: CALCIUM CARBONATE
     Indication: PRODUCT USED FOR UNKNOWN INDICATION
     Dosage: 1250 MG, QD
     Route: 065
  3. VITAMIN D [Concomitant]
     Active Substance: CHOLECALCIFEROL
     Indication: PRODUCT USED FOR UNKNOWN INDICATION
     Dosage: 400 IU, QD
     Route: 065

REACTIONS (26)
  - Gastric disorder [Unknown]
  - Weight decreased [Unknown]
  - Solar lentigo [Unknown]
  - Nausea [Unknown]
  - Blood pressure increased [Unknown]
  - Nightmare [Unknown]
  - Lymphadenopathy [Unknown]
  - Influenza like illness [Unknown]
  - Abdominal pain [Unknown]
  - Drug ineffective [Unknown]
  - Glassy eyes [Unknown]
  - Abdominal distension [Unknown]
  - Cortisol decreased [Unknown]
  - Pyrexia [Recovered/Resolved]
  - Eating disorder [Unknown]
  - Chills [Unknown]
  - Swelling [Unknown]
  - Asthenia [Unknown]
  - Inappropriate schedule of drug administration [Unknown]
  - Otorrhoea [Unknown]
  - Stomach mass [Unknown]
  - Back pain [Unknown]
  - Decreased appetite [Unknown]
  - Confusional state [Unknown]
  - Secretion discharge [Unknown]
  - Pigmentation disorder [Unknown]

NARRATIVE: CASE EVENT DATE: 20150622
